FAERS Safety Report 9587710 (Version 3)
Quarter: 2013Q4

REPORT INFORMATION
  Report Type: Spontaneous
  Country: CN (occurrence: CN)
  Receive Date: 20131003
  Receipt Date: 20131018
  Transmission Date: 20140711
  Serious: Yes (Death)
  Sender: FDA-Public Use
  Company Number: CN-NAPPMUNDI-GBR-2013-0015875

PATIENT
  Age: 58 Year
  Sex: Male

DRUGS (6)
  1. OXYCONTIN TABLETS [Suspect]
     Indication: CANCER PAIN
     Dosage: 30 MG, Q8H
     Route: 048
  2. OXYCONTIN TABLETS [Suspect]
     Dosage: 40 MG, Q12H
     Route: 048
  3. OXYCONTIN TABLETS [Suspect]
     Dosage: 30 MG, Q12H
     Route: 048
  4. OXYCONTIN TABLETS [Suspect]
     Dosage: 20 MG, Q12H
     Route: 048
  5. OXYCONTIN TABLETS [Suspect]
     Dosage: 10 MG, Q12H
     Route: 048
  6. MORPHINE SULFATE PR TABLET [Suspect]
     Indication: CANCER PAIN
     Dosage: 60 MG, Q12H
     Route: 048

REACTIONS (2)
  - Orthostatic hypotension [Recovered/Resolved]
  - Malignant neoplasm progression [Fatal]
